FAERS Safety Report 12789450 (Version 1)
Quarter: 2016Q3

REPORT INFORMATION
  Report Type: Report from Study
  Country: US (occurrence: US)
  Receive Date: 20160928
  Receipt Date: 20160928
  Transmission Date: 20161109
  Serious: Yes (Other)
  Sender: FDA-Public Use
  Company Number: US-ROCHE-1667082

PATIENT
  Age: 64 Year
  Sex: Female
  Weight: 119.5 kg

DRUGS (3)
  1. IXABEPILONE [Suspect]
     Active Substance: IXABEPILONE
     Indication: ENDOMETRIAL CANCER
     Dosage: 30 MG/M2 OVER 1 HR ON DAY 1 FOR 6 CYCLES, SINGLE DOSE
     Route: 042
     Dates: start: 20101007
  2. BEVACIZUMAB [Suspect]
     Active Substance: BEVACIZUMAB
     Indication: ENDOMETRIAL CANCER
     Dosage: CYCLE 21 DAYS: NO PRIOR RADIOTHERAPY?OVER 30-90 MINUTES ON DAY 1 (STARTING WITH CYCLE 2) FOR 6 CYCLE
     Route: 042
     Dates: start: 20101007
  3. CARBOPLATIN. [Suspect]
     Active Substance: CARBOPLATIN
     Indication: ENDOMETRIAL CANCER
     Dosage: AUC: 6 OVER 30 MINUTES ON DAY 1 FOR 6 CYCLES
     Route: 042
     Dates: start: 20101007

REACTIONS (5)
  - Neutrophil count decreased [Unknown]
  - Anaphylactic reaction [Recovered/Resolved]
  - Hypersensitivity [Unknown]
  - Anaphylactic reaction [Unknown]
  - International normalised ratio increased [Unknown]

NARRATIVE: CASE EVENT DATE: 20101007
